FAERS Safety Report 12820668 (Version 4)
Quarter: 2016Q4

REPORT INFORMATION
  Report Type: Report from Study
  Country: CA (occurrence: CA)
  Receive Date: 20161006
  Receipt Date: 20161222
  Transmission Date: 20170207
  Serious: Yes (Hospitalization, Other)
  Sender: FDA-Public Use
  Company Number: CA-JNJFOC-20161000783

PATIENT
  Age: 43 Year
  Sex: Female
  Weight: 63 kg

DRUGS (2)
  1. REMICADE [Suspect]
     Active Substance: INFLIXIMAB
     Indication: CROHN^S DISEASE
     Route: 042
     Dates: start: 201605
  2. REMICADE [Suspect]
     Active Substance: INFLIXIMAB
     Indication: CROHN^S DISEASE
     Route: 042
     Dates: start: 20160628

REACTIONS (8)
  - Intestinal resection [Unknown]
  - Stoma site irritation [Unknown]
  - Intestinal perforation [Unknown]
  - Device leakage [Unknown]
  - Gait disturbance [Unknown]
  - Stoma site erythema [Unknown]
  - Ileostomy [Unknown]
  - Groin pain [Unknown]

NARRATIVE: CASE EVENT DATE: 2016
